FAERS Safety Report 6973973-0 (Version None)
Quarter: 2010Q3

REPORT INFORMATION
  Report Type: 
  Country: None (occurrence: None)
  Receive Date: 20100909
  Receipt Date: 20100903
  Transmission Date: 20110219
  Serious: Yes (Other)
  Sender: FDA-Public Use
  Company Number: GXKR2010DE10086

PATIENT
  Age: 68 Year
  Sex: Male

DRUGS (13)
  1. AMINEURIN (NGX) [Suspect]
     Indication: SLEEP DISORDER
     Dosage: 25 MG, QD
     Route: 048
  2. AMINEURIN (NGX) [Interacting]
     Dosage: 50 MG, QD
     Route: 048
     Dates: start: 20080501
  3. ALCOHOL [Interacting]
     Route: 048
  4. LEVOTHYROXINE SODIUM [Concomitant]
  5. CONCOR [Concomitant]
  6. HYDROCORTISONE [Concomitant]
  7. PANTOPRAZOLE [Concomitant]
  8. OMNIC [Concomitant]
  9. SORTIS [Concomitant]
  10. LORAZEPAM [Concomitant]
  11. KALIUM [Concomitant]
  12. CALCIUM [Concomitant]
  13. MAGNESIUM [Concomitant]

REACTIONS (2)
  - ALCOHOL INTERACTION [None]
  - ATRIAL FIBRILLATION [None]
